FAERS Safety Report 11501482 (Version 1)
Quarter: 2015Q3

REPORT INFORMATION
  Report Type: Spontaneous
  Country: FR (occurrence: FR)
  Receive Date: 20150914
  Receipt Date: 20150914
  Transmission Date: 20151125
  Serious: Yes (Other)
  Sender: FDA-Public Use
  Company Number: FR-GLAXOSMITHKLINE-FR2015GSK129799

PATIENT
  Age: 25 Year
  Sex: Female

DRUGS (4)
  1. LAMICTAL [Suspect]
     Active Substance: LAMOTRIGINE
     Indication: BIPOLAR DISORDER
     Dosage: UNK
     Route: 048
     Dates: start: 20150725, end: 20150808
  2. VALDOXAN [Concomitant]
     Active Substance: AGOMELATINE
     Indication: BIPOLAR DISORDER
     Dosage: UNK
     Dates: start: 201501, end: 20150725
  3. AMOXICILLINE [Suspect]
     Active Substance: AMOXICILLIN
     Indication: INFLUENZA LIKE ILLNESS
     Dosage: UNK
     Route: 048
     Dates: start: 20150805
  4. DEPAKOTE [Concomitant]
     Active Substance: DIVALPROEX SODIUM
     Indication: BIPOLAR DISORDER
     Dosage: UNK
     Dates: start: 201501, end: 20150725

REACTIONS (1)
  - Rash scarlatiniform [Recovered/Resolved]

NARRATIVE: CASE EVENT DATE: 20150808
